FAERS Safety Report 15110699 (Version 1)
Quarter: 2018Q3

REPORT INFORMATION
  Report Type: Spontaneous
  Country: US (occurrence: US)
  Receive Date: 20180705
  Receipt Date: 20180705
  Transmission Date: 20181010
  Serious: No
  Sender: FDA-Public Use
  Company Number: US-SA-2018SA104732

PATIENT
  Age: 46 Year
  Sex: Male

DRUGS (5)
  1. LANTUS SOLOSTAR [Suspect]
     Active Substance: INSULIN GLARGINE
     Indication: TYPE 1 DIABETES MELLITUS
     Dosage: 40 IU,QD
     Route: 058
     Dates: start: 2008
  2. APIDRA [Suspect]
     Active Substance: INSULIN GLULISINE
     Dosage: UNK UNK,UNK
     Route: 058
     Dates: start: 2008
  3. APIDRA [Suspect]
     Active Substance: INSULIN GLULISINE
     Indication: TYPE 1 DIABETES MELLITUS
     Dosage: UNK UNK,UNK
     Route: 058
     Dates: start: 2008
  4. LANTUS SOLOSTAR [Suspect]
     Active Substance: INSULIN GLARGINE
     Dosage: 50 IU,QD
     Route: 058
  5. NOVOLOG [Concomitant]
     Active Substance: INSULIN ASPART
     Dosage: UNK UNK,UNK
     Route: 065

REACTIONS (2)
  - Product quality issue [Unknown]
  - Blood glucose increased [Unknown]
